FAERS Safety Report 7290677-8 (Version None)
Quarter: 2011Q1

REPORT INFORMATION
  Report Type: 
  Country: None (occurrence: None)
  Receive Date: 20110131
  Receipt Date: 20110114
  Transmission Date: 20110831
  Serious: Yes (Hospitalization)
  Sender: FDA-Public Use
  Company Number: 2011SA002892

PATIENT
  Age: 65 Year
  Sex: Female

DRUGS (10)
  1. NEBIVOLOL HCL [Concomitant]
  2. ESTRADIOL [Concomitant]
  3. FLUTICASONE PROPIONATE [Concomitant]
  4. MECLIZINE [Concomitant]
  5. MULTAQ [Suspect]
     Indication: ATRIAL FIBRILLATION
     Dosage: 400 MILLIGRAM(S); TWICE A DAY; ORAL
     Route: 048
     Dates: start: 20110105
  6. KLONOPIN [Suspect]
  7. OXYBUTYNIN [Concomitant]
  8. DABIGATRAN [Suspect]
     Indication: ANTICOAGULANT THERAPY
  9. CYMBALTA [Suspect]
     Dates: start: 20101223
  10. PEPCID [Concomitant]

REACTIONS (31)
  - LEFT VENTRICULAR DYSFUNCTION [None]
  - PULMONARY HYPERTENSION [None]
  - ENCEPHALOPATHY [None]
  - HYPONATRAEMIA [None]
  - RECTAL HAEMORRHAGE [None]
  - HEPATIC FAILURE [None]
  - MALAISE [None]
  - APHASIA [None]
  - HEPATIC STEATOSIS [None]
  - TRICUSPID VALVE INCOMPETENCE [None]
  - BLOOD POTASSIUM INCREASED [None]
  - CONFUSIONAL STATE [None]
  - BLOOD ALBUMIN DECREASED [None]
  - MITRAL VALVE INCOMPETENCE [None]
  - ATRIAL FIBRILLATION [None]
  - HEPATITIS VIRAL [None]
  - SEDATION [None]
  - HAEMATOCRIT DECREASED [None]
  - DYSARTHRIA [None]
  - CONGESTIVE CARDIOMYOPATHY [None]
  - BLOOD CHLORIDE DECREASED [None]
  - BLOOD GLUCOSE INCREASED [None]
  - FEELING ABNORMAL [None]
  - HEPATITIS ACUTE [None]
  - EJECTION FRACTION DECREASED [None]
  - ISCHAEMIA [None]
  - WHITE BLOOD CELL COUNT INCREASED [None]
  - CARBON DIOXIDE DECREASED [None]
  - BLOOD CALCIUM DECREASED [None]
  - PROTEIN TOTAL DECREASED [None]
  - HAEMOGLOBIN DECREASED [None]
